FAERS Safety Report 5245676-4 (Version None)
Quarter: 2007Q1

REPORT INFORMATION
  Report Type: 
  Country: None (occurrence: None)
  Receive Date: 20070216
  Receipt Date: 20070201
  Transmission Date: 20070707
  Serious: Yes (Death)
  Sender: FDA-Public Use
  Company Number: 236529

PATIENT
  Age: 62 Year
  Sex: Male

DRUGS (3)
  1. ERLOTINIB(ERLOTINIB) TABLET [Suspect]
     Indication: NON-SMALL CELL LUNG CANCER
     Dosage: 50 MG, QD, ORAL
     Route: 048
     Dates: start: 20060801
  2. AVASTIN [Suspect]
     Indication: NON-SMALL CELL LUNG CANCER
     Dosage: 10 MG/KG, DAY 1+8/Q4W, IV BOLUS
     Route: 040
     Dates: start: 20060801
  3. CETUXIMAB(CETUXIMAB) [Suspect]
     Indication: NON-SMALL CELL LUNG CANCER
     Dosage: 250 MG/M2, INTRAVENOUS; 400 MG/M2
     Route: 042
     Dates: start: 20060810, end: 20070104

REACTIONS (1)
  - BLOOD CALCIUM INCREASED [None]
